FAERS Safety Report 24910065 (Version 2)
Quarter: 2025Q1

REPORT INFORMATION
  Report Type: Report from Study
  Country: US (occurrence: US)
  Receive Date: 20250131
  Receipt Date: 20250321
  Transmission Date: 20250409
  Serious: Yes (Hospitalization)
  Sender: BAYER HEALTHCARE PHARMACEUTICALS INC.
  Company Number: US-BAYER-2025A014865

PATIENT
  Age: 56 Year
  Sex: Male
  Weight: 106.12 kg

DRUGS (6)
  1. ADEMPAS [Suspect]
     Active Substance: RIOCIGUAT
     Indication: Pulmonary arterial hypertension
     Dates: start: 20230913
  2. ADEMPAS [Suspect]
     Active Substance: RIOCIGUAT
     Indication: Pulmonary arterial hypertension
     Dosage: 2.5 MG, TID
     Route: 048
  3. ADVAIR HFA [Concomitant]
     Active Substance: FLUTICASONE PROPIONATE\SALMETEROL XINAFOATE
  4. BREZTRI [Concomitant]
     Active Substance: BUDESONIDE\FORMOTEROL\GLYCOPYRROLATE
  5. ELIQUIS [Concomitant]
     Active Substance: APIXABAN
  6. OXYGEN [Concomitant]
     Active Substance: OXYGEN

REACTIONS (4)
  - Cardiac disorder [None]
  - Dyspnoea [None]
  - Respiratory arrest [None]
  - Pulmonary arterial hypertension [None]

NARRATIVE: CASE EVENT DATE: 20250101
